FAERS Safety Report 20566173 (Version 1)
Quarter: 2022Q1

REPORT INFORMATION
  Report Type: Spontaneous
  Country: US (occurrence: None)
  Receive Date: 20220308
  Receipt Date: 20220308
  Transmission Date: 20220424
  Serious: Yes (Other)
  Sender: FDA-Public Use
  Company Number: 2022A095193

PATIENT
  Sex: Male
  Weight: 173 kg

DRUGS (5)
  1. CRESTOR [Suspect]
     Active Substance: ROSUVASTATIN CALCIUM
     Indication: Lipids abnormal
     Route: 048
     Dates: start: 20090101
  2. CRESTOR [Suspect]
     Active Substance: ROSUVASTATIN CALCIUM
     Indication: Lipids abnormal
     Route: 048
  3. AMLODIPINE [Concomitant]
     Active Substance: AMLODIPINE BESYLATE
  4. LEVETIRACETAN [Concomitant]
  5. ASTORVASTIN [Concomitant]

REACTIONS (6)
  - Haemorrhagic stroke [Recovering/Resolving]
  - Seizure [Recovered/Resolved]
  - Cerebral amyloid angiopathy [Unknown]
  - Inflammation [Unknown]
  - Low density lipoprotein decreased [Unknown]
  - High density lipoprotein decreased [Unknown]

NARRATIVE: CASE EVENT DATE: 20090101
